FAERS Safety Report 8150519-5 (Version None)
Quarter: 2012Q1

REPORT INFORMATION
  Report Type: 
  Country: None (occurrence: None)
  Receive Date: 20120220
  Receipt Date: 20120207
  Transmission Date: 20120608
  Serious: Yes (Other)
  Sender: FDA-Public Use
  Company Number: US-UCBSA-051145

PATIENT
  Sex: Female

DRUGS (4)
  1. TOPAMAX [Concomitant]
  2. KEPPRA [Suspect]
  3. DILANTIN [Suspect]
  4. PHENOBARBITAL TAB [Concomitant]

REACTIONS (6)
  - GINGIVAL SWELLING [None]
  - GAIT DISTURBANCE [None]
  - BALANCE DISORDER [None]
  - DRUG INEFFECTIVE [None]
  - LIVER INJURY [None]
  - SPEECH DISORDER [None]
